FAERS Safety Report 13680627 (Version 1)
Quarter: 2017Q2

REPORT INFORMATION
  Report Type: Report from Study
  Country: CA (occurrence: CA)
  Receive Date: 20170623
  Receipt Date: 20170623
  Transmission Date: 20170830
  Serious: Yes (Other)
  Sender: FDA-Public Use
  Company Number: CA-AMGEN-CANSL2017092982

PATIENT
  Age: 70 Year
  Sex: Female

DRUGS (10)
  1. SYNTHROID [Concomitant]
     Active Substance: LEVOTHYROXINE SODIUM
     Dosage: 112 MUG, QD
  2. PROLIA [Suspect]
     Active Substance: DENOSUMAB
     Indication: PRODUCT USED FOR UNKNOWN INDICATION
     Dosage: UNK
     Route: 065
  3. CADUET [Concomitant]
     Active Substance: AMLODIPINE BESYLATE\ATORVASTATIN CALCIUM
     Dosage: 10/40 MG OD POST SUPPER
  4. PAROXETINE HCL [Concomitant]
     Active Substance: PAROXETINE HYDROCHLORIDE
     Dosage: 20 MG, UNK
  5. HYDROMORPHONE [Concomitant]
     Active Substance: HYDROMORPHONE
     Dosage: UNK
  6. CALCIUM [Concomitant]
     Active Substance: CALCIUM
     Dosage: UNK
  7. METOPROLOL. [Concomitant]
     Active Substance: METOPROLOL
     Dosage: 50 MG, BID
  8. ACETAMINOPHEN. [Concomitant]
     Active Substance: ACETAMINOPHEN
     Dosage: 500 MG, UNK
  9. COVERSYL [Concomitant]
     Active Substance: PERINDOPRIL
     Dosage: 8MG/2.5 MG, QD
  10. VITAMIN D [Concomitant]
     Active Substance: CHOLECALCIFEROL
     Dosage: 1000 IU, UNK

REACTIONS (4)
  - Compression fracture [Unknown]
  - Arthritis [Not Recovered/Not Resolved]
  - Bone pain [Unknown]
  - Neuralgia [Unknown]

NARRATIVE: CASE EVENT DATE: 201705
